FAERS Safety Report 8586071-X (Version None)
Quarter: 2012Q3

REPORT INFORMATION
  Report Type: 
  Country: None (occurrence: None)
  Receive Date: 20120810
  Receipt Date: 20120802
  Transmission Date: 20120928
  Serious: Yes (Hospitalization)
  Sender: FDA-Public Use
  Company Number: JP-ELI_LILLY_AND_COMPANY-JP201203007117

PATIENT
  Age: 56 Year
  Sex: Female

DRUGS (6)
  1. AMLODIPINE [Concomitant]
     Dosage: 5 MG, BID
     Route: 048
  2. FORTEO [Suspect]
     Indication: OSTEOPOROSIS
     Dosage: 20 UG, QD
     Route: 058
     Dates: start: 20120222
  3. OLMESARTAN MEDOXOMIL [Concomitant]
     Dosage: 20 MG, QD
     Route: 048
  4. TRICHLORMETHIAZIDE [Concomitant]
     Dosage: 1 DF, QD
     Route: 048
  5. ISOSORBIDE DINITRATE [Concomitant]
     Dosage: 20 MG, BID
     Route: 048
  6. ASPIRIN [Concomitant]
     Dosage: 100 MG, QD
     Route: 048

REACTIONS (2)
  - FRACTURE [None]
  - OEDEMA PERIPHERAL [None]
